FAERS Safety Report 18158449 (Version 1)
Quarter: 2020Q3

REPORT INFORMATION
  Report Type: Report from Study
  Country: US (occurrence: US)
  Receive Date: 20200817
  Receipt Date: 20200817
  Transmission Date: 20201103
  Serious: Yes (Hospitalization)
  Sender: FDA-Public Use
  Company Number: US-BAYER-2020-132093

PATIENT
  Age: 60 Year
  Sex: Female

DRUGS (1)
  1. STIVARGA [Suspect]
     Active Substance: REGORAFENIB
     Indication: BONE CANCER
     Dosage: 160 MG, QD, FOR 21 DAYS ON AND 7 DAYS OFF
     Dates: end: 20200729

REACTIONS (6)
  - Fluid intake reduced [None]
  - Oral pain [Not Recovered/Not Resolved]
  - Product use in unapproved indication [None]
  - Liver disorder [Not Recovered/Not Resolved]
  - Off label use [None]
  - Feeding disorder [None]

NARRATIVE: CASE EVENT DATE: 20200601
